FAERS Safety Report 15454238 (Version 2)
Quarter: 2018Q4

REPORT INFORMATION
  Report Type: Report from Study
  Country: BR (occurrence: BR)
  Receive Date: 20181002
  Receipt Date: 20181004
  Transmission Date: 20190204
  Serious: Yes (Hospitalization)
  Sender: FDA-Public Use
  Company Number: BR-TAKEDA-2017TUS023827

PATIENT
  Age: 35 Year
  Sex: Male

DRUGS (1)
  1. VEDOLIZUMAB [Suspect]
     Active Substance: VEDOLIZUMAB
     Indication: CROHN^S DISEASE
     Dosage: 300 MG, UNK
     Route: 042
     Dates: start: 20171023

REACTIONS (9)
  - Pyrexia [Unknown]
  - Arthralgia [Unknown]
  - Off label use [Unknown]
  - Abdominal pain [Unknown]
  - Asthenia [Unknown]
  - Rash [Unknown]
  - Hospitalisation [Unknown]
  - Diarrhoea [Unknown]
  - Nausea [Unknown]

NARRATIVE: CASE EVENT DATE: 2017
